FAERS Safety Report 19240089 (Version 2)
Quarter: 2021Q2

REPORT INFORMATION
  Report Type: Report from Study
  Country: None (occurrence: CA)
  Receive Date: 20210511
  Receipt Date: 20210621
  Transmission Date: 20210717
  Serious: Yes (Other)
  Sender: FDA-Public Use
  Company Number: CA-ABBVIE-20K-028-3464076-00

PATIENT
  Age: 54 Year
  Sex: Female

DRUGS (2)
  1. HUMIRA [Suspect]
     Active Substance: ADALIMUMAB
     Route: 058
     Dates: start: 20210414
  2. HUMIRA [Suspect]
     Active Substance: ADALIMUMAB
     Indication: ANKYLOSING SPONDYLITIS
     Route: 058
     Dates: start: 20190813, end: 2021

REACTIONS (10)
  - Abdominal distension [Unknown]
  - Heavy menstrual bleeding [Unknown]
  - Psoriasis [Unknown]
  - Uterine leiomyoma [Not Recovered/Not Resolved]
  - Vaginal haemorrhage [Not Recovered/Not Resolved]
  - Mobility decreased [Recovering/Resolving]
  - Pain [Unknown]
  - Spinal pain [Recovering/Resolving]
  - Back pain [Recovering/Resolving]
  - Polyp [Not Recovered/Not Resolved]

NARRATIVE: CASE EVENT DATE: 2020
